FAERS Safety Report 18354401 (Version 2)
Quarter: 2020Q4

REPORT INFORMATION
  Report Type: Spontaneous
  Country: US (occurrence: US)
  Receive Date: 20201007
  Receipt Date: 20201012
  Transmission Date: 20210114
  Serious: Yes (Life-Threatening, Other)
  Sender: FDA-Public Use
  Company Number: US-PFIZER INC-2020384218

PATIENT
  Age: 75 Year
  Sex: Male

DRUGS (2)
  1. GEMCITABINE HYDROCHLORIDE. [Suspect]
     Active Substance: GEMCITABINE HYDROCHLORIDE
     Dosage: UNK, CYCLIC (REDUCED BY 25%)
  2. GEMCITABINE HYDROCHLORIDE. [Suspect]
     Active Substance: GEMCITABINE HYDROCHLORIDE
     Indication: URETERIC CANCER METASTATIC
     Dosage: 1000 MG/M2, CYCLIC (DAY 1, DAY 8, AND DAY 15 WAS BEGUN, FOLLOWED BY 2 WEEKS OF REST)

REACTIONS (3)
  - Oedema peripheral [Unknown]
  - Thrombocytopenia [Unknown]
  - Pulmonary toxicity [Recovered/Resolved]
